FAERS Safety Report 8459546 (Version 3)
Quarter: 2012Q4

REPORT INFORMATION
  Report Type: 
  Country: US (occurrence: US)
  Receive Date: 20120314
  Receipt Date: 20121025
  Transmission Date: 20130627
  Serious: No
  Sender: FDA-Public Use
  Company Number: US-ASTRAZENECA-2011SE45736

PATIENT
  Age: 70 Year
  Sex: Male
  Weight: 119.7 kg

DRUGS (7)
  1. TOPROL XL [Suspect]
     Dosage: GENERIC
     Route: 048
  2. TOPROL XL [Suspect]
     Route: 048
  3. METOPROLOL TARTRATE [Suspect]
     Route: 048
  4. CRESTOR [Suspect]
     Route: 048
     Dates: start: 201107
  5. LISINOPRIL [Concomitant]
  6. PRAVASTATIN [Concomitant]
  7. OTHER STATIN [Concomitant]

REACTIONS (7)
  - Hearing impaired [Unknown]
  - Impaired work ability [Unknown]
  - Malaise [Unknown]
  - Road traffic accident [Unknown]
  - Sluggishness [Unknown]
  - Fatigue [Unknown]
  - Drug dose omission [Unknown]
